FAERS Safety Report 9750501 (Version 1)
Quarter: 2013Q4

REPORT INFORMATION
  Report Type: Spontaneous
  Country: US (occurrence: US)
  Receive Date: 20131212
  Receipt Date: 20131212
  Transmission Date: 20140711
  Serious: No
  Sender: FDA-Public Use
  Company Number: US-GILEAD-2013-0089594

PATIENT
  Sex: Male

DRUGS (1)
  1. LETAIRIS [Suspect]
     Indication: PRODUCT USED FOR UNKNOWN INDICATION
     Dosage: 5 MG, QD
     Route: 048
     Dates: start: 20131125, end: 20131205

REACTIONS (6)
  - Pruritus [Unknown]
  - Cough [Unknown]
  - Breath sounds abnormal [Unknown]
  - Wheezing [Unknown]
  - Swelling [Unknown]
  - Fluid retention [Unknown]
